FAERS Safety Report 21158087 (Version 5)
Quarter: 2023Q4

REPORT INFORMATION
  Report Type: Report from Study
  Country: US (occurrence: US)
  Receive Date: 20220801
  Receipt Date: 20231023
  Transmission Date: 20240110
  Serious: Yes (Hospitalization, Other)
  Sender: FDA-Public Use
  Company Number: US-GW PHARMA-2022-US-025170

PATIENT
  Sex: Male
  Weight: 36.281 kg

DRUGS (15)
  1. EPIDIOLEX [Suspect]
     Active Substance: CANNABIDIOL
     Indication: Lennox-Gastaut syndrome
     Dosage: 2 MILLILITER, TID
  2. EPIDIOLEX [Suspect]
     Active Substance: CANNABIDIOL
     Indication: Partial seizures
     Dosage: 5.4 MILLILITER
     Route: 048
     Dates: start: 202203
  3. EPIDIOLEX [Suspect]
     Active Substance: CANNABIDIOL
     Indication: Tuberous sclerosis complex
     Dosage: 1.5 MILLIGRAM, TID
     Route: 048
     Dates: start: 201902
  4. VIMPAT [Concomitant]
     Active Substance: LACOSAMIDE
     Indication: Product used for unknown indication
     Dosage: UNK
  5. VIMPAT [Concomitant]
     Active Substance: LACOSAMIDE
     Dosage: UNK
  6. VIMPAT [Concomitant]
     Active Substance: LACOSAMIDE
     Dosage: UNK
  7. VIMPAT [Concomitant]
     Active Substance: LACOSAMIDE
     Dosage: UNK
  8. SABRIL [Concomitant]
     Active Substance: VIGABATRIN
     Indication: Product used for unknown indication
     Dosage: UNK
  9. SABRIL [Concomitant]
     Active Substance: VIGABATRIN
     Dosage: UNK
  10. SABRIL [Concomitant]
     Active Substance: VIGABATRIN
     Dosage: UNK
  11. SABRIL [Concomitant]
     Active Substance: VIGABATRIN
     Dosage: UNK
  12. DIASTAT [Concomitant]
     Active Substance: DIAZEPAM
     Indication: Product used for unknown indication
     Dosage: UNK
  13. DIASTAT [Concomitant]
     Active Substance: DIAZEPAM
     Dosage: UNK
  14. DIASTAT [Concomitant]
     Active Substance: DIAZEPAM
     Dosage: UNK
  15. DIASTAT [Concomitant]
     Active Substance: DIAZEPAM
     Dosage: UNK

REACTIONS (7)
  - Urinary retention [Unknown]
  - Condition aggravated [Unknown]
  - Hospitalisation [Unknown]
  - Seizure [Unknown]
  - Weight increased [Unknown]
  - Dysuria [Unknown]
  - Product prescribing issue [Unknown]
